FAERS Safety Report 17636895 (Version 1)
Quarter: 2020Q2

REPORT INFORMATION
  Report Type: Spontaneous
  Country: US (occurrence: US)
  Receive Date: 20200406
  Receipt Date: 20200406
  Transmission Date: 20200713
  Serious: Yes (Other)
  Sender: FDA-Public Use
  Company Number: None

PATIENT
  Age: 39 Year
  Sex: Female
  Weight: 114.75 kg

DRUGS (15)
  1. LITHIUM. [Concomitant]
     Active Substance: LITHIUM
  2. HYDROXYZINE PAM [Concomitant]
     Active Substance: HYDROXYZINE PAMOATE
  3. LORATADINE. [Concomitant]
     Active Substance: LORATADINE
  4. ACETAMINOPHEN. [Concomitant]
     Active Substance: ACETAMINOPHEN
  5. NICOTENE LOZENGES [Concomitant]
  6. RISPERIDONE. [Concomitant]
     Active Substance: RISPERIDONE
  7. ADHAIE HFA [Concomitant]
  8. ALBUTEROL SULFATE. [Concomitant]
     Active Substance: ALBUTEROL SULFATE
  9. MONTELUKAST SOD [Concomitant]
     Active Substance: MONTELUKAST SODIUM
  10. FLEXERIL [Concomitant]
     Active Substance: CYCLOBENZAPRINE HYDROCHLORIDE
  11. LIDOCAINE PATCH [Concomitant]
     Active Substance: LIDOCAINE
  12. ALAPRAZOLAM [Concomitant]
     Active Substance: ALPRAZOLAM
  13. FLUTICASONE PROPIONATE NASAL SPRAY [Concomitant]
     Active Substance: FLUTICASONE PROPIONATE
  14. ALBUTEROL SULFATE INHALATION SOLUTION 0.083? [Suspect]
     Active Substance: ALBUTEROL SULFATE
     Indication: ASTHMA
     Dosage: ?          QUANTITY:1 INHALATION(S);?
     Route: 055
  15. ARIPIPRAZOLE. [Concomitant]
     Active Substance: ARIPIPRAZOLE

REACTIONS (3)
  - Dyspnoea [None]
  - Drug ineffective [None]
  - Product formulation issue [None]

NARRATIVE: CASE EVENT DATE: 20200406
